FAERS Safety Report 4344999-0 (Version None)
Quarter: 2004Q2

REPORT INFORMATION
  Report Type: 
  Country: None (occurrence: None)
  Receive Date: 20040420
  Receipt Date: 20040406
  Transmission Date: 20050107
  Serious: Yes (Other)
  Sender: FDA-Public Use
  Company Number: 2004-114862-NL

PATIENT
  Sex: 0

DRUGS (1)
  1. REMERON [Suspect]

REACTIONS (2)
  - LUNG INFILTRATION [None]
  - PULMONARY TOXICITY [None]
